FAERS Safety Report 17073212 (Version 1)
Quarter: 2019Q4

REPORT INFORMATION
  Report Type: Report from Study
  Country: None (occurrence: US)
  Receive Date: 20191125
  Receipt Date: 20191125
  Transmission Date: 20200122
  Serious: Yes (Other)
  Sender: FDA-Public Use
  Company Number: US-ABBVIE-19K-163-3011046-00

PATIENT
  Age: 51 Year
  Sex: Male

DRUGS (1)
  1. HUMIRA [Suspect]
     Active Substance: ADALIMUMAB
     Indication: PSORIASIS
     Route: 058
     Dates: start: 20190509

REACTIONS (3)
  - Prostatomegaly [Not Recovered/Not Resolved]
  - Skin infection [Not Recovered/Not Resolved]
  - Hernia [Recovered/Resolved]

NARRATIVE: CASE EVENT DATE: 201910
